FAERS Safety Report 13029172 (Version 1)
Quarter: 2016Q4

REPORT INFORMATION
  Report Type: Spontaneous
  Country: US (occurrence: US)
  Receive Date: 20161214
  Receipt Date: 20161214
  Transmission Date: 20170207
  Serious: No
  Sender: FDA-Public Use
  Company Number: None

PATIENT
  Age: 43 Year
  Sex: Female

DRUGS (7)
  1. BACLOFEN. [Concomitant]
     Active Substance: BACLOFEN
  2. MS CONTIN [Concomitant]
     Active Substance: MORPHINE SULFATE
  3. KEPPRA [Concomitant]
     Active Substance: LEVETIRACETAM
  4. HYDROMORPHONE [Concomitant]
     Active Substance: HYDROMORPHONE
  5. AMPYRA [Suspect]
     Active Substance: DALFAMPRIDINE
     Indication: MULTIPLE SCLEROSIS
     Route: 048
     Dates: start: 201602
  6. REBIF [Concomitant]
     Active Substance: INTERFERON BETA-1A
  7. DIAZEPAM. [Concomitant]
     Active Substance: DIAZEPAM

REACTIONS (1)
  - Laboratory test abnormal [None]

NARRATIVE: CASE EVENT DATE: 20161123
